FAERS Safety Report 5318056-0 (Version None)
Quarter: 2007Q1

REPORT INFORMATION
  Report Type: 
  Country: None (occurrence: None)
  Receive Date: 20070201
  Receipt Date: 20051221
  Transmission Date: 20070707
  Serious: Yes (Other)
  Sender: FDA-Public Use
  Company Number: MEDI-0003927

PATIENT
  Age: 51 Year
  Sex: Male
  Weight: 136.3059 kg

DRUGS (8)
  1. ETHYOL [Suspect]
     Indication: CHEMOTHERAPY
     Dosage: SUBCUTANEOUS
     Route: 058
     Dates: start: 20050928, end: 20051027
  2. ETHYOL [Suspect]
     Indication: RADIOTHERAPY
     Dosage: SUBCUTANEOUS
     Route: 058
     Dates: start: 20050928, end: 20051027
  3. RADIATION THERAPY [Concomitant]
  4. CISPLATIN [Concomitant]
  5. TAXOTERE [Concomitant]
  6. HYDROCODONE (HYDROCODONE) [Concomitant]
  7. IBUPROFEN [Concomitant]
  8. ZOFRAN [Concomitant]

REACTIONS (8)
  - EPISTAXIS [None]
  - ERYTHEMA [None]
  - ERYTHEMA MULTIFORME [None]
  - INJECTION SITE ERYTHEMA [None]
  - INJECTION SITE RASH [None]
  - PHARYNGOLARYNGEAL PAIN [None]
  - PRURITUS [None]
  - SKIN BURNING SENSATION [None]
